FAERS Safety Report 6497661-2 (Version None)
Quarter: 2009Q4

REPORT INFORMATION
  Report Type: 
  Country: None (occurrence: None)
  Receive Date: 20091215
  Receipt Date: 20091204
  Transmission Date: 20100525
  Serious: Yes (Death)
  Sender: FDA-Public Use
  Company Number: JP-ROCHE-674203

PATIENT
  Age: 70 Year
  Sex: Male

DRUGS (1)
  1. TAMIFLU [Suspect]
     Dosage: STOP DATE: 2009
     Route: 048
     Dates: start: 20091130

REACTIONS (2)
  - PNEUMONIA BACTERIAL [None]
  - PNEUMONIA INFLUENZAL [None]
